FAERS Safety Report 6385148-7 (Version None)
Quarter: 2009Q4

REPORT INFORMATION
  Report Type: 
  Country: None (occurrence: None)
  Receive Date: 20091002
  Receipt Date: 20090923
  Transmission Date: 20100525
  Serious: Yes (Hospitalization)
  Sender: FDA-Public Use
  Company Number: AT-JNJFOC-20090801081

PATIENT
  Sex: Female
  Weight: 71 kg

DRUGS (41)
  1. GOLIMUMAB [Suspect]
     Route: 058
     Dates: start: 20070319
  2. GOLIMUMAB [Suspect]
     Route: 058
     Dates: start: 20070319
  3. GOLIMUMAB [Suspect]
     Route: 058
     Dates: start: 20070319
  4. GOLIMUMAB [Suspect]
     Route: 058
     Dates: start: 20070319
  5. GOLIMUMAB [Suspect]
     Route: 058
     Dates: start: 20070319
  6. GOLIMUMAB [Suspect]
     Route: 058
     Dates: start: 20070319
  7. GOLIMUMAB [Suspect]
     Route: 058
     Dates: start: 20070319
  8. GOLIMUMAB [Suspect]
     Route: 058
     Dates: start: 20070319
  9. GOLIMUMAB [Suspect]
     Route: 058
     Dates: start: 20070319
  10. GOLIMUMAB [Suspect]
     Route: 058
     Dates: start: 20070319
  11. GOLIMUMAB [Suspect]
     Route: 058
     Dates: start: 20070319
  12. GOLIMUMAB [Suspect]
     Route: 058
     Dates: start: 20070319
  13. GOLIMUMAB [Suspect]
     Route: 058
     Dates: start: 20070319
  14. GOLIMUMAB [Suspect]
     Route: 058
     Dates: start: 20070319
  15. GOLIMUMAB [Suspect]
     Route: 058
     Dates: start: 20070319
  16. GOLIMUMAB [Suspect]
     Route: 058
     Dates: start: 20070319
  17. GOLIMUMAB [Suspect]
     Route: 058
     Dates: start: 20070319
  18. GOLIMUMAB [Suspect]
     Route: 058
     Dates: start: 20070319
  19. GOLIMUMAB [Suspect]
     Route: 058
     Dates: start: 20070319
  20. GOLIMUMAB [Suspect]
     Route: 058
     Dates: start: 20070319
  21. GOLIMUMAB [Suspect]
     Route: 058
     Dates: start: 20070319
  22. GOLIMUMAB [Suspect]
     Route: 058
     Dates: start: 20070319
  23. GOLIMUMAB [Suspect]
     Route: 058
     Dates: start: 20070319
  24. GOLIMUMAB [Suspect]
     Route: 058
     Dates: start: 20070319
  25. GOLIMUMAB [Suspect]
     Route: 058
     Dates: start: 20070319
  26. GOLIMUMAB [Suspect]
     Route: 058
     Dates: start: 20070319
  27. GOLIMUMAB [Suspect]
     Route: 058
     Dates: start: 20070319
  28. GOLIMUMAB [Suspect]
     Route: 058
     Dates: start: 20070319
  29. GOLIMUMAB [Suspect]
     Route: 058
     Dates: start: 20070319
  30. GOLIMUMAB [Suspect]
     Route: 058
     Dates: start: 20070319
  31. GOLIMUMAB [Suspect]
     Indication: RHEUMATOID ARTHRITIS
     Route: 058
     Dates: start: 20070319
  32. FOLSAN [Concomitant]
     Route: 048
  33. METHOTREXATE [Concomitant]
     Route: 048
  34. DEFLAMAT [Concomitant]
     Route: 048
  35. ZURCAL [Concomitant]
     Route: 048
  36. LANSOPRAZOLE [Concomitant]
     Route: 048
  37. NEUROFENAC [Concomitant]
     Route: 048
  38. ACTONEL [Concomitant]
     Route: 048
  39. LOVENOX [Concomitant]
     Route: 058
  40. VENORUTIN NOS [Concomitant]
     Route: 048
  41. CIPROXIN NOS [Concomitant]
     Route: 048

REACTIONS (1)
  - B-CELL LYMPHOMA [None]
